FAERS Safety Report 13917945 (Version 2)
Quarter: 2019Q4

REPORT INFORMATION
  Report Type: Spontaneous
  Country: US (occurrence: US)
  Receive Date: 20170829
  Receipt Date: 20191211
  Transmission Date: 20200122
  Serious: No
  Sender: FDA-Public Use
  Company Number: US-SA-2016SA164633

PATIENT
  Age: 11 Year
  Sex: Female

DRUGS (4)
  1. FABRAZYME [Suspect]
     Active Substance: AGALSIDASE BETA
     Dosage: 55 MG,QOW
     Route: 041
     Dates: start: 20160830
  2. FABRAZYME [Suspect]
     Active Substance: AGALSIDASE BETA
     Indication: FABRY^S DISEASE
     Dosage: 95 MG, QOW
     Route: 041
     Dates: start: 20130429, end: 20160811
  3. FABRAZYME [Suspect]
     Active Substance: AGALSIDASE BETA
     Dosage: 55 MG,QOW
     Route: 041
     Dates: start: 20160830
  4. FABRAZYME [Suspect]
     Active Substance: AGALSIDASE BETA
     Dosage: 95 MG, QOW
     Route: 041
     Dates: start: 20130429, end: 20160811

REACTIONS (2)
  - Malaise [Unknown]
  - Malaise [Unknown]

NARRATIVE: CASE EVENT DATE: 201608
